FAERS Safety Report 25416121 (Version 3)
Quarter: 2025Q3

REPORT INFORMATION
  Report Type: Spontaneous
  Country: GB (occurrence: GB)
  Receive Date: 20250610
  Receipt Date: 20250802
  Transmission Date: 20251020
  Serious: Yes (Death, Life-Threatening, Other)
  Sender: ALEXION PHARMACEUTICALS
  Company Number: None

PATIENT
  Age: 52 Year
  Sex: Female

DRUGS (12)
  1. ONDEXXYA [Suspect]
     Active Substance: ANDEXANET ALFA
     Route: 065
  2. LEVOTHYROXINE [Concomitant]
     Active Substance: LEVOTHYROXINE
     Indication: Hypothyroidism
     Route: 065
  3. LEVOTHYROXINE [Concomitant]
     Active Substance: LEVOTHYROXINE
     Indication: Hypothyroidism
  4. COCODAMOL [Concomitant]
     Active Substance: ACETAMINOPHEN\CODEINE PHOSPHATE
     Indication: Pain
     Route: 065
  5. AMOXICILLIN [Concomitant]
     Active Substance: AMOXICILLIN
     Indication: Infection
     Route: 065
  6. BISOPROLOL [Concomitant]
     Active Substance: BISOPROLOL
     Indication: Atrial fibrillation
     Route: 065
  7. BISOPROLOL [Concomitant]
     Active Substance: BISOPROLOL
     Indication: Atrial fibrillation
  8. LANSOPRAZOLE [Concomitant]
     Active Substance: LANSOPRAZOLE
     Indication: Gastrointestinal stoma output abnormal
     Route: 065
  9. LANSOPRAZOLE [Concomitant]
     Active Substance: LANSOPRAZOLE
     Indication: Gastrointestinal stoma output abnormal
  10. MIRABEGRON [Concomitant]
     Active Substance: MIRABEGRON
     Route: 065
  11. RIVAROXABAN [Concomitant]
     Active Substance: RIVAROXABAN
     Indication: Anticoagulant therapy
     Route: 065
  12. RIVAROXABAN [Concomitant]
     Active Substance: RIVAROXABAN
     Indication: Anticoagulant therapy

REACTIONS (11)
  - Thrombosis [Not Recovered/Not Resolved]
  - Haemorrhage intracranial [Fatal]
  - Renal infarct [Not Recovered/Not Resolved]
  - Intestinal ischaemia [Not Recovered/Not Resolved]
  - Splenic infarction [Not Recovered/Not Resolved]
  - Cardiac ventricular thrombosis [Not Recovered/Not Resolved]
  - Cardiac ventricular thrombosis [Not Recovered/Not Resolved]
  - Carotid artery thrombosis [Not Recovered/Not Resolved]
  - Intestinal infarction [Not Recovered/Not Resolved]
  - Portal vein thrombosis [Not Recovered/Not Resolved]
  - Mydriasis [Not Recovered/Not Resolved]

NARRATIVE: CASE EVENT DATE: 20250602
